FAERS Safety Report 8585824-1 (Version None)
Quarter: 2012Q3

REPORT INFORMATION
  Report Type: 
  Country: None (occurrence: None)
  Receive Date: 20120810
  Receipt Date: 20120806
  Transmission Date: 20120928
  Serious: No
  Sender: FDA-Public Use
  Company Number: US-BAYER-2012-080267

PATIENT
  Sex: Female

DRUGS (1)
  1. MIRENA [Suspect]
     Dosage: 20 MCG/24HR, CONT
     Route: 015
     Dates: start: 20120629

REACTIONS (7)
  - PRURITUS GENERALISED [None]
  - BREAST TENDERNESS [None]
  - RASH PAPULAR [None]
  - FATIGUE [None]
  - DIZZINESS [None]
  - URTICARIA [None]
  - BREAST PAIN [None]
